FAERS Safety Report 8852491 (Version 1)
Quarter: 2012Q4

REPORT INFORMATION
  Report Type: 
  Country: FI (occurrence: FI)
  Receive Date: 20121022
  Receipt Date: 20121022
  Transmission Date: 20130627
  Serious: Yes (Other)
  Sender: FDA-Public Use
  Company Number: FI-BAYER-2012-098676

PATIENT
  Age: 35 Year
  Sex: Female

DRUGS (1)
  1. BETAFERON [Suspect]
     Dosage: UNK
     Dates: start: 2010

REACTIONS (3)
  - Oropharyngeal pain [Recovered/Resolved]
  - Pyrexia [None]
  - Thyroiditis [None]
